FAERS Safety Report 7605076-6 (Version None)
Quarter: 2011Q3

REPORT INFORMATION
  Report Type: 
  Country: None (occurrence: None)
  Receive Date: 20110713
  Receipt Date: 20091120
  Transmission Date: 20111222
  Serious: Yes (Hospitalization, Other)
  Sender: FDA-Public Use
  Company Number: US-BAYER-200940752NA

PATIENT
  Age: 48 Year
  Sex: Male
  Weight: 136.5 kg

DRUGS (23)
  1. ANCEF [Concomitant]
     Dosage: 1 G, UNK
     Route: 042
  2. CONTRAST MEDIA [Concomitant]
     Indication: CATHETERISATION CARDIAC
     Dosage: UNK
     Dates: start: 20000803
  3. DURAGESIC-100 [Concomitant]
     Dosage: 75 MCG - CHANGE EVERY 72 HOURS
     Route: 062
     Dates: start: 20000728
  4. SENOKOT [Concomitant]
     Dosage: ONE TWICE DAILY
     Dates: start: 20000802
  5. TRASYLOL [Suspect]
     Indication: CORONARY ARTERY BYPASS
     Dosage: 1/2 DOSE PUMP PRIME
     Dates: start: 20000803, end: 20000803
  6. PROCARDIA XL [Concomitant]
     Dosage: 30 MG, QD
     Route: 048
  7. ACETAMINOPHEN [Concomitant]
     Dosage: 650 MG EVERY 4 HOURS AS NEEDED
     Route: 048
  8. HEPARIN [Concomitant]
     Dosage: UNK
     Route: 042
     Dates: start: 20000803
  9. PERI-COLACE [Concomitant]
     Dosage: 100 MG, BID
     Route: 048
  10. XANAX [Concomitant]
     Dosage: 0.25 MG, TID
     Route: 048
  11. ATENOLOL [Concomitant]
     Dosage: 25 MG, QD
     Route: 048
  12. TORADOL [Concomitant]
     Dosage: 10 MG, BID
     Route: 048
     Dates: start: 20000728
  13. ALBUMIN (HUMAN) [Concomitant]
     Dosage: UNK
     Route: 042
     Dates: start: 20000803
  14. KLONOPIN [Concomitant]
     Dosage: 0.5 DAILY
     Route: 048
  15. BUMEX [Concomitant]
     Dosage: 1 MG, QD
     Route: 048
  16. MORPHINE SULFATE [Concomitant]
     Dosage: 4 MG EVERY 6 HOURS
     Route: 042
     Dates: start: 20000728
  17. PROTAMINE SULFATE [Concomitant]
     Dosage: UNK
     Route: 042
     Dates: start: 20000803
  18. PRILOSEC [Concomitant]
     Dosage: 20 MG, QD
     Route: 048
  19. RESTORIL [Concomitant]
     Dosage: 15 MG, HS
     Route: 048
  20. PRAVACHOL [Concomitant]
     Dosage: 20 MG, QD
     Route: 048
  21. ACETYLSALICYLIC ACID SRT [Concomitant]
     Dosage: 325 MG, QD
     Route: 048
     Dates: end: 20000731
  22. DICLOXACILLIN [Concomitant]
     Dosage: 250 MG EVERY 6 HOURS X 18 DAYS
     Route: 048
     Dates: start: 20000728
  23. HEPARIN [Concomitant]
     Dosage: 5000 U, UNK
     Route: 058
     Dates: start: 20000731

REACTIONS (11)
  - ANXIETY [None]
  - PAIN [None]
  - UNEVALUABLE EVENT [None]
  - ANHEDONIA [None]
  - DISABILITY [None]
  - RENAL INJURY [None]
  - FEAR [None]
  - RENAL FAILURE [None]
  - MULTI-ORGAN FAILURE [None]
  - DEPRESSION [None]
  - INJURY [None]
